FAERS Safety Report 24219972 (Version 1)
Quarter: 2024Q3

REPORT INFORMATION
  Report Type: Spontaneous
  Country: PT (occurrence: PT)
  Receive Date: 20240817
  Receipt Date: 20240817
  Transmission Date: 20241017
  Serious: Yes (Death)
  Sender: ROCHE
  Company Number: None

PATIENT
  Age: 72 Year
  Sex: Male

DRUGS (3)
  1. TOCILIZUMAB [Suspect]
     Active Substance: TOCILIZUMAB
     Indication: COVID-19 treatment
     Dosage: 720 MG SINGLE DOSE
     Route: 050
     Dates: start: 20220207, end: 20220207
  2. METHYLPREDNISOLONE [Concomitant]
     Active Substance: METHYLPREDNISOLONE
  3. REMDESIVIR [Concomitant]
     Active Substance: REMDESIVIR
     Dates: start: 20220206, end: 20220206

REACTIONS (2)
  - Drug ineffective [Fatal]
  - No adverse event [Unknown]
